FAERS Safety Report 5957566-X (Version None)
Quarter: 2008Q4

REPORT INFORMATION
  Report Type: 
  Country: None (occurrence: None)
  Receive Date: 20081117
  Receipt Date: 20081117
  Transmission Date: 20090506
  Serious: Yes (Life-Threatening, Hospitalization, Disabling)
  Sender: FDA-Public Use
  Company Number: None

PATIENT
  Sex: Female
  Weight: 58.9676 kg

DRUGS (2)
  1. LYRICA [Suspect]
     Indication: INTERVERTEBRAL DISC PROTRUSION
     Dosage: 25MG X3 DAILY 7DAYS - 50MG X3 DAILY - THEN 75MG, 2X DAILY  ORAL
     Route: 048
     Dates: start: 20080211, end: 20080415
  2. LYRICA [Suspect]
     Indication: PAIN
     Dosage: 25MG X3 DAILY 7DAYS - 50MG X3 DAILY - THEN 75MG, 2X DAILY  ORAL
     Route: 048
     Dates: start: 20080211, end: 20080415

REACTIONS (4)
  - ABNORMAL CLOTTING FACTOR [None]
  - MEMORY IMPAIRMENT [None]
  - OPTIC NERVE DISORDER [None]
  - PULMONARY EMBOLISM [None]
